FAERS Safety Report 5528658-4 (Version None)
Quarter: 2007Q4

REPORT INFORMATION
  Report Type: 
  Country: None (occurrence: None)
  Receive Date: 20071129
  Receipt Date: 20071121
  Transmission Date: 20080405
  Serious: Yes (Other)
  Sender: FDA-Public Use
  Company Number: PHHY2007NZ00562

PATIENT
  Sex: Male

DRUGS (1)
  1. CLOZARIL [Suspect]
     Indication: SCHIZOPHRENIA
     Dosage: 225 MG/DAY
     Route: 048
     Dates: start: 20021014, end: 20070718

REACTIONS (3)
  - BLEPHAROSPASM [None]
  - DYSKINESIA [None]
  - DYSTONIA [None]
